FAERS Safety Report 23062676 (Version 6)
Quarter: 2023Q4

REPORT INFORMATION
  Report Type: Report from Study
  Country: KR (occurrence: KR)
  Receive Date: 20231013
  Receipt Date: 20231226
  Transmission Date: 20240110
  Serious: Yes (Hospitalization, Other)
  Sender: FDA-Public Use
  Company Number: KR-CELLTRION INC.-2023KR019503

PATIENT

DRUGS (31)
  1. HERZUMA [Suspect]
     Active Substance: TRASTUZUMAB-PKRB
     Indication: Breast cancer
     Dosage: 306.9 MG EVERY 3 WEEKS
     Route: 042
     Dates: start: 20230712, end: 20231127
  2. RIBOCICLIB [Suspect]
     Active Substance: RIBOCICLIB
     Indication: Breast cancer
     Dosage: 400 MG TAKEN 3 WEEKS THEN 1 WEEK OFF
     Route: 048
     Dates: start: 20230712, end: 20230927
  3. LETROZOLE [Suspect]
     Active Substance: LETROZOLE
     Indication: Breast cancer
     Dosage: 2.5 MG, QD
     Route: 048
     Dates: start: 20230712, end: 20230927
  4. ACETAMINOPHEN [Concomitant]
     Active Substance: ACETAMINOPHEN
     Indication: Pain
     Dosage: 100 ML, ONCE
     Route: 042
     Dates: start: 20230930, end: 20230930
  5. ACETAMINOPHEN [Concomitant]
     Active Substance: ACETAMINOPHEN
     Dosage: 100 ML, ONCE
     Route: 042
     Dates: start: 20231004, end: 20231007
  6. ACETAMINOPHEN [Concomitant]
     Active Substance: ACETAMINOPHEN
     Dosage: 650 MG, TID
     Route: 048
     Dates: start: 20231127, end: 20231128
  7. AMBROXOL [Concomitant]
     Active Substance: AMBROXOL
     Indication: Premedication
     Dosage: 15 MG, Q12HR
     Route: 042
     Dates: start: 20231127, end: 20231127
  8. ASCORBIC ACID [Concomitant]
     Active Substance: ASCORBIC ACID
     Indication: Vitamin supplementation
     Dosage: 100 MG, QD
     Route: 042
     Dates: start: 20231127, end: 20231127
  9. ATROPINE SULFATE [Concomitant]
     Active Substance: ATROPINE SULFATE
     Indication: Premedication
     Dosage: 1 ML, ONCE
     Route: 042
     Dates: start: 20231005, end: 20231005
  10. CEFOTAXIME [Concomitant]
     Active Substance: CEFOTAXIME SODIUM
     Indication: Infection
     Dosage: 100 MG, BID
     Route: 048
     Dates: start: 20231001
  11. CEFOTETAN [Concomitant]
     Active Substance: CEFOTETAN DISODIUM
     Indication: Premedication
     Dosage: 1 G, QD
     Route: 042
     Dates: start: 20231126, end: 20231127
  12. CEFTRIAXONE [Concomitant]
     Active Substance: CEFTRIAXONE\CEFTRIAXONE SODIUM
     Indication: Infection
     Dosage: 2 G, QD
     Route: 042
     Dates: start: 20230928, end: 20230930
  13. CEFTRIAXONE [Concomitant]
     Active Substance: CEFTRIAXONE\CEFTRIAXONE SODIUM
     Dosage: 2 G, QD
     Route: 042
     Dates: start: 20231004, end: 20231007
  14. CIMETROPIUM BROMIDE [Concomitant]
     Active Substance: CIMETROPIUM BROMIDE
     Indication: Premedication
     Dosage: 1 ML, ONCE
     Route: 030
     Dates: start: 20231005, end: 20231005
  15. ESOMEPRAZOLE SODIUM [Concomitant]
     Active Substance: ESOMEPRAZOLE SODIUM
     Indication: Premedication
     Dosage: 40 MG, ONCE
     Route: 042
     Dates: start: 20231127, end: 20231127
  16. FAMOTIDINE [Concomitant]
     Active Substance: FAMOTIDINE
     Indication: Prophylaxis
     Dosage: 10 ML, ONCE
     Route: 042
     Dates: start: 20230930, end: 20230930
  17. FAMOTIDINE [Concomitant]
     Active Substance: FAMOTIDINE
     Indication: Abdominal pain upper
     Dosage: 20 MG, BID
     Route: 048
     Dates: start: 20231001
  18. BUTYLSCOPOLAMINE BROMIDE [Concomitant]
     Active Substance: BUTYLSCOPOLAMINE BROMIDE
     Indication: Pain
     Dosage: 1 ML, ONCE
     Route: 042
     Dates: start: 20230930, end: 20230930
  19. BUTYLSCOPOLAMINE BROMIDE [Concomitant]
     Active Substance: BUTYLSCOPOLAMINE BROMIDE
     Dosage: 10 MG, QD
     Route: 048
     Dates: start: 20231001
  20. BUTYLSCOPOLAMINE BROMIDE [Concomitant]
     Active Substance: BUTYLSCOPOLAMINE BROMIDE
     Dosage: 1 ML, ONCE
     Route: 042
     Dates: start: 20231004, end: 20231004
  21. LIDOCAINE VISCOUS [Concomitant]
     Active Substance: LIDOCAINE HYDROCHLORIDE
     Indication: Premedication
     Dosage: 15 ML, ONCE
     Route: 048
     Dates: start: 20231005, end: 20231005
  22. METOCLOPRAMIDE [Concomitant]
     Active Substance: METOCLOPRAMIDE
     Indication: Nausea
     Dosage: 2 ML ONCE
     Route: 042
     Dates: start: 20230927, end: 20230927
  23. METRONIDAZOLE [Concomitant]
     Active Substance: METRONIDAZOLE
     Indication: Infection
     Dosage: 100 ML, Q8HR
     Route: 042
     Dates: start: 20230928, end: 20230930
  24. METRONIDAZOLE [Concomitant]
     Active Substance: METRONIDAZOLE
     Dosage: 250 MG, TID
     Route: 048
     Dates: start: 20231001
  25. METRONIDAZOLE [Concomitant]
     Active Substance: METRONIDAZOLE
     Dosage: 100 ML, Q8HR
     Route: 042
     Dates: start: 20231004, end: 20231007
  26. PANTOPRAZOLE [Concomitant]
     Active Substance: PANTOPRAZOLE
     Indication: Prophylaxis
     Dosage: 40 MG, QD
     Route: 048
     Dates: start: 20231128
  27. MEPERIDINE [Concomitant]
     Active Substance: MEPERIDINE
     Indication: Premedication
     Dosage: 1 ML, ONCE
     Route: 030
     Dates: start: 20231005, end: 20231005
  28. PHAZYME COMPLEX [Concomitant]
     Indication: Prophylaxis
     Dosage: 1 TAB, TID
     Route: 048
     Dates: start: 20231128
  29. RAMOSETRON HYDROCHLORIDE [Concomitant]
     Active Substance: RAMOSETRON HYDROCHLORIDE
     Indication: Premedication
     Dosage: 0.3 MG ONCE
     Route: 042
     Dates: start: 20231127, end: 20231127
  30. SIMETHICONE (DIMETHICONE) [Concomitant]
     Active Substance: DIMETHICONE
     Indication: Premedication
     Dosage: 10 ML, ONCE
     Route: 048
     Dates: start: 20231005, end: 20231005
  31. TRAMADOL [Concomitant]
     Active Substance: TRAMADOL\TRAMADOL HYDROCHLORIDE
     Indication: Pain
     Dosage: 2 ML, ONCE
     Route: 030
     Dates: start: 20230927, end: 20230929

REACTIONS (6)
  - Cholecystectomy [Recovered/Resolved]
  - Cholangitis [Recovered/Resolved]
  - Abdominal pain [Recovered/Resolved]
  - Neutropenia [Recovered/Resolved]
  - Intentional product use issue [Unknown]
  - Intentional dose omission [Unknown]

NARRATIVE: CASE EVENT DATE: 20230927
